FAERS Safety Report 20411106 (Version 1)
Quarter: 2022Q1

REPORT INFORMATION
  Report Type: Spontaneous
  Country: US (occurrence: None)
  Receive Date: 20220201
  Receipt Date: 20220201
  Transmission Date: 20220424
  Serious: Yes (Death)
  Sender: FDA-Public Use
  Company Number: None

PATIENT
  Age: 74 Year
  Sex: Male
  Weight: 68 kg

DRUGS (1)
  1. BARICITINIB [Suspect]
     Active Substance: BARICITINIB
     Dosage: FREQUENCY : DAILY;?
     Route: 048
     Dates: start: 20210901, end: 20210909

REACTIONS (6)
  - Respiratory distress [None]
  - Tachypnoea [None]
  - Cough [None]
  - Wheezing [None]
  - Palpitations [None]
  - Acute kidney injury [None]

NARRATIVE: CASE EVENT DATE: 20211003
